FAERS Safety Report 18917218 (Version 1)
Quarter: 2021Q1

REPORT INFORMATION
  Report Type: Spontaneous
  Country: IT (occurrence: IT)
  Receive Date: 20210219
  Receipt Date: 20210219
  Transmission Date: 20210420
  Serious: Yes (Hospitalization)
  Sender: FDA-Public Use
  Company Number: IT-MYLANLABS-2021M1010615

PATIENT
  Age: 23 Year
  Sex: Male

DRUGS (1)
  1. CITALOPRAM [Suspect]
     Active Substance: CITALOPRAM HYDROBROMIDE
     Indication: PRODUCT USED FOR UNKNOWN INDICATION
     Dosage: 4 DOSAGE FORM, TOTAL
     Route: 048
     Dates: start: 20201216, end: 20201216

REACTIONS (5)
  - Vomiting [Unknown]
  - Psychomotor hyperactivity [Unknown]
  - Intentional overdose [Unknown]
  - Suicide attempt [Unknown]
  - Nausea [Unknown]

NARRATIVE: CASE EVENT DATE: 20201216
